FAERS Safety Report 7715907-7 (Version None)
Quarter: 2011Q3

REPORT INFORMATION
  Report Type: 
  Country: None (occurrence: None)
  Receive Date: 20110823
  Receipt Date: 20110810
  Transmission Date: 20111222
  Serious: Yes (Death, Life-Threatening)
  Sender: FDA-Public Use
  Company Number: FK201101620

PATIENT
  Age: 39 Year
  Sex: Male

DRUGS (1)
  1. PROPRANOLOL [Suspect]
     Indication: THYROTOXIC CRISIS
     Dosage: 2 MG, INTRAVENOUS   5 MG, INFUSED; 0.16 MG/MIN OVER 30 MIN, INTRAVENOUS
     Route: 042

REACTIONS (7)
  - CARDIO-RESPIRATORY ARREST [None]
  - MULTI-ORGAN FAILURE [None]
  - SUPRAVENTRICULAR TACHYCARDIA [None]
  - NO THERAPEUTIC RESPONSE [None]
  - CARDIOGENIC SHOCK [None]
  - COMA [None]
  - ANURIA [None]
